FAERS Safety Report 9396336 (Version 3)
Quarter: 2014Q4

REPORT INFORMATION
  Report Type: Spontaneous
  Country: US (occurrence: None)
  Receive Date: 20130708
  Receipt Date: 20141229
  Transmission Date: 20150529
  Serious: Yes (Other)
  Sender: FDA-Public Use
  Company Number: JPI-P-033360

PATIENT
  Age: 45 Year
  Sex: Female
  Weight: 61.2 kg

DRUGS (6)
  1. ZOLOFT [Concomitant]
     Active Substance: SERTRALINE HYDROCHLORIDE
  2. CLONIDINE (CLONIDINE HYDROCHLORIDE) [Concomitant]
  3. XYREM [Suspect]
     Active Substance: SODIUM OXYBATE
     Indication: CATAPLEXY
     Dosage: 4.5 GM, (2.25 GM, 2 IN 1 D), ORAL
     Route: 048
     Dates: start: 20040915
  4. XYREM [Suspect]
     Active Substance: SODIUM OXYBATE
     Indication: NARCOLEPSY
     Dosage: 4.5 GM, (2.25 GM, 2 IN 1 D), ORAL
     Route: 048
     Dates: start: 20040915
  5. CLONAZEPAM (CLONAZEPAM) [Concomitant]
  6. XYREM [Suspect]
     Active Substance: SODIUM OXYBATE
     Indication: SOMNOLENCE
     Dosage: 4.5 GM, (2.25 GM, 2 IN 1 D), ORAL
     Route: 048
     Dates: start: 20040915

REACTIONS (10)
  - Mastectomy [None]
  - Breast cancer [None]
  - Vaginal laceration [None]
  - Prescribed overdose [None]
  - Menopause [None]
  - Hysterectomy [None]
  - Night sweats [None]
  - Vulvovaginal dryness [None]
  - Post-traumatic stress disorder [None]
  - Dyspareunia [None]

NARRATIVE: CASE EVENT DATE: 2009
